FAERS Safety Report 4818986-X (Version None)
Quarter: 2005Q4

REPORT INFORMATION
  Report Type: 
  Country: None (occurrence: None)
  Receive Date: 20051103
  Receipt Date: 20051025
  Transmission Date: 20060501
  Serious: Yes (Death, Hospitalization)
  Sender: FDA-Public Use
  Company Number: US-AMGEN-US155583

PATIENT
  Age: 63 Year
  Sex: Female

DRUGS (2)
  1. NEULASTA [Suspect]
     Indication: CHEMOTHERAPY
     Dates: start: 20050924
  2. HEPARIN [Concomitant]
     Dates: start: 20050925

REACTIONS (3)
  - CARDIAC ARREST [None]
  - DEEP VEIN THROMBOSIS [None]
  - SPLENIC RUPTURE [None]
